FAERS Safety Report 24534680 (Version 1)
Quarter: 2024Q4

REPORT INFORMATION
  Report Type: Spontaneous
  Country: FR (occurrence: FR)
  Receive Date: 20241022
  Receipt Date: 20241022
  Transmission Date: 20250115
  Serious: Yes (Hospitalization, Other)
  Sender: MYLAN
  Company Number: FR-SANDOZ-SDZ2024FR084326

PATIENT
  Age: 55 Year
  Sex: Female

DRUGS (5)
  1. GEMCITABINE [Suspect]
     Active Substance: GEMCITABINE
     Indication: Cholangiocarcinoma
     Dosage: 1000 MILLIGRAM/SQ.METER,(INITIALLY FOR 21 DAY UNTIL MAR-2022 THEN ALONE, CUMULATED DOSE OF 37 G/M2)
     Route: 065
     Dates: start: 2022, end: 2022
  2. GEMCITABINE [Suspect]
     Active Substance: GEMCITABINE
     Indication: Metastases to liver
     Dosage: 1000 MILLIGRAM/SQ. METER,(INITIALLY FOR 21 DAY UNTIL MAR-2022 THEN ALONE)
     Route: 065
     Dates: start: 2022, end: 2022
  3. GEMCITABINE [Suspect]
     Active Substance: GEMCITABINE
     Indication: Metastases to lymph nodes
  4. OXALIPLATIN [Concomitant]
     Active Substance: OXALIPLATIN
     Indication: Cholangiocarcinoma
     Dosage: UNK
     Route: 065
     Dates: end: 202203
  5. OXALIPLATIN [Concomitant]
     Active Substance: OXALIPLATIN
     Indication: Metastases to lymph nodes
     Dosage: UNK
     Route: 065
     Dates: end: 202203

REACTIONS (6)
  - Acute kidney injury [Unknown]
  - Renal-limited thrombotic microangiopathy [Unknown]
  - Anaemia [Unknown]
  - Thrombocytopenia [Unknown]
  - Thrombotic microangiopathy [Recovered/Resolved]
  - Off label use [Unknown]

NARRATIVE: CASE EVENT DATE: 20220101
